FAERS Safety Report 4919646-7 (Version None)
Quarter: 2006Q1

REPORT INFORMATION
  Report Type: 
  Country: None (occurrence: None)
  Receive Date: 20060216
  Receipt Date: 20060209
  Transmission Date: 20060701
  Serious: Yes (Life-Threatening)
  Sender: FDA-Public Use
  Company Number: 2004-118536-NL

PATIENT
  Age: 48 Year
  Sex: Female

DRUGS (17)
  1. MIRTAZAPINE [Suspect]
     Indication: DEPRESSION
     Dosage: 60 MG ORAL
     Route: 048
     Dates: start: 20040709, end: 20040710
  2. MIRTAZAPINE [Suspect]
     Indication: WEIGHT DECREASED
     Dosage: 60 MG ORAL
     Route: 048
     Dates: start: 20040709, end: 20040710
  3. ASPARTAME [Suspect]
  4. METHYSERGIDE [Concomitant]
  5. LEVOTHYROXINE SODIUM [Concomitant]
  6. LIOTHYRONINE SODIUM [Concomitant]
  7. IMMUNE GLOBULIN INTRAVENOUS (HUMAN) [Concomitant]
  8. FAMCICLOVIR [Concomitant]
  9. HYDROXYCHLOROQUINE SULFATE [Concomitant]
  10. MIRTAZAPINE [Concomitant]
  11. PILOCARPINE HYDROCHLORIDE [Concomitant]
  12. RABEPRAZOLE SODIUM [Concomitant]
  13. VITAMIN B-12 [Concomitant]
  14. BUPROPION HYDROCHLORIDE [Concomitant]
  15. ESTRADIOL [Concomitant]
  16. AZATHROMYCIN [Concomitant]
  17. FLUTICASONE PROPIONATE [Concomitant]

REACTIONS (11)
  - COLD SWEAT [None]
  - DIZZINESS [None]
  - DYSPHAGIA [None]
  - DYSPNOEA [None]
  - HEART RATE INCREASED [None]
  - NAUSEA [None]
  - PALPITATIONS [None]
  - PHARYNGEAL OEDEMA [None]
  - SWOLLEN TONGUE [None]
  - TREMOR [None]
  - VOMITING [None]
